FAERS Safety Report 8325259-X (Version None)
Quarter: 2012Q2

REPORT INFORMATION
  Report Type: 
  Country: None (occurrence: None)
  Receive Date: 20120427
  Receipt Date: 20120307
  Transmission Date: 20120825
  Serious: Yes (Other)
  Sender: FDA-Public Use
  Company Number: JP-20120015

PATIENT
  Age: 66 Year
  Sex: Male

DRUGS (1)
  1. 10ML (LIPIODOL ULTRA FLUIDE) (ETHODIZED OIL) [Suspect]
     Indication: HEPATIC EMBOLISATION
     Dosage: INTRA-ARTERIAL
     Route: 013

REACTIONS (2)
  - HEPATIC INFARCTION [None]
  - OFF LABEL USE [None]
